FAERS Safety Report 8341182-9 (Version None)
Quarter: 2012Q2

REPORT INFORMATION
  Report Type: 
  Country: None (occurrence: None)
  Receive Date: 20120507
  Receipt Date: 20120427
  Transmission Date: 20120825
  Serious: Yes (Other)
  Sender: FDA-Public Use
  Company Number: IT-ASTRAZENECA-2012SE27750

PATIENT
  Age: 96 Day
  Sex: Female

DRUGS (2)
  1. TOPAMAX [Concomitant]
     Indication: EPILEPSY
     Dates: start: 20120416, end: 20120418
  2. PROPOFOL [Suspect]
     Indication: SEDATION
     Route: 042
     Dates: start: 20120418, end: 20120418

REACTIONS (2)
  - EPILEPSY [None]
  - ERYTHEMA [None]
